FAERS Safety Report 9512121 (Version 2)
Quarter: 2013Q4

REPORT INFORMATION
  Report Type: Spontaneous
  Country: DE (occurrence: DE)
  Receive Date: 20130910
  Receipt Date: 20131107
  Transmission Date: 20140711
  Serious: Yes (Other)
  Sender: FDA-Public Use
  Company Number: DE-JNJFOC-20130903586

PATIENT
  Age: 48 Year
  Sex: Female
  Weight: 89 kg

DRUGS (4)
  1. PALEXIA RETARD (100 MG) [Suspect]
     Indication: FIBROMYALGIA
     Route: 048
     Dates: start: 20120224, end: 20130603
  2. NOVAMINSULFON [Concomitant]
     Route: 048
     Dates: start: 20120224
  3. AMITRIPTYLIN [Concomitant]
     Route: 048
     Dates: start: 20120224
  4. MARCUMAR [Concomitant]
     Route: 065
     Dates: start: 2009

REACTIONS (4)
  - Hepatic enzyme increased [Unknown]
  - Scleral discolouration [Recovered/Resolved]
  - Nausea [Recovered/Resolved]
  - Vomiting [Recovered/Resolved]
